FAERS Safety Report 16129611 (Version 4)
Quarter: 2019Q2

REPORT INFORMATION
  Report Type: Spontaneous
  Country: CO (occurrence: CO)
  Receive Date: 20190328
  Receipt Date: 20190621
  Transmission Date: 20190711
  Serious: Yes (Hospitalization, Other)
  Sender: FDA-Public Use
  Company Number: CO-AEGERION PHARMACEUTICAL, INC-AEGR004191

PATIENT

DRUGS (7)
  1. OMEGA 3                            /01334101/ [Concomitant]
     Active Substance: OMEGA-3 FATTY ACIDS
     Indication: PRODUCT USED FOR UNKNOWN INDICATION
     Dosage: 1 CAPSULE, QD
  2. METFORMINE                         /00082701/ [Concomitant]
     Active Substance: METFORMIN HYDROCHLORIDE
     Indication: PRODUCT USED FOR UNKNOWN INDICATION
  3. INSULINE                           /01223401/ [Concomitant]
     Active Substance: INSULIN NOS
     Indication: PRODUCT USED FOR UNKNOWN INDICATION
  4. GEMFIBROZIL. [Concomitant]
     Active Substance: GEMFIBROZIL
     Indication: PRODUCT USED FOR UNKNOWN INDICATION
     Dosage: 600 MG, QD
  5. INSULINA                           /00030501/ [Concomitant]
     Active Substance: INSULIN NOS
     Indication: PRODUCT USED FOR UNKNOWN INDICATION
  6. JUXTAPID [Suspect]
     Active Substance: LOMITAPIDE MESYLATE
     Indication: HYPERTRIGLYCERIDAEMIA
     Dosage: 5 MG, QD
     Route: 048
     Dates: start: 20181221, end: 20190313
  7. VITAMIN E                          /00110501/ [Concomitant]
     Active Substance: TOCOPHEROL
     Indication: PRODUCT USED FOR UNKNOWN INDICATION
     Dosage: 1 CAPSULE, QD

REACTIONS (13)
  - Blood bilirubin increased [Recovered/Resolved]
  - Blood glucose increased [Unknown]
  - Pancreatic mass [Unknown]
  - Blood bilirubin unconjugated increased [Recovered/Resolved]
  - Abdominal pain [Unknown]
  - Hepatitis [Unknown]
  - Blood alkaline phosphatase increased [Unknown]
  - Abdominal pain upper [Recovered/Resolved]
  - Bilirubin conjugated increased [Recovered/Resolved]
  - Nausea [Recovered/Resolved]
  - Therapy cessation [Unknown]
  - Off label use [Unknown]
  - Vomiting [Recovered/Resolved]

NARRATIVE: CASE EVENT DATE: 20190308
